FAERS Safety Report 4378260-5 (Version None)
Quarter: 2004Q2

REPORT INFORMATION
  Report Type: 
  Country: None (occurrence: None)
  Receive Date: 20040609
  Receipt Date: 20040524
  Transmission Date: 20050107
  Serious: Yes (Hospitalization)
  Sender: FDA-Public Use
  Company Number: USA040568284

PATIENT
  Age: 73 Year
  Sex: Female
  Weight: 61 kg

DRUGS (2)
  1. HUMALOG [Suspect]
     Indication: DIABETES MELLITUS
  2. HUMULIN N [Suspect]
     Indication: DIABETES MELLITUS
     Dosage: 21 U DAY

REACTIONS (4)
  - BLOOD GLUCOSE DECREASED [None]
  - BONE GRAFT [None]
  - FALL [None]
  - LOWER LIMB FRACTURE [None]
